FAERS Safety Report 11264545 (Version 3)
Quarter: 2015Q4

REPORT INFORMATION
  Report Type: Spontaneous
  Country: JP (occurrence: JP)
  Receive Date: 20150713
  Receipt Date: 20151008
  Transmission Date: 20160304
  Serious: Yes (Hospitalization)
  Sender: FDA-Public Use
  Company Number: JP-ROCHE-1606766

PATIENT
  Age: 75 Year
  Sex: Female

DRUGS (9)
  1. LUCENTIS [Suspect]
     Active Substance: RANIBIZUMAB
     Indication: RETINAL VEIN OCCLUSION
     Dosage: IN RIGHT EYE
     Route: 050
     Dates: start: 20131210
  2. LUCENTIS [Suspect]
     Active Substance: RANIBIZUMAB
     Dosage: IN RIGHT EYE
     Route: 050
     Dates: start: 20150609
  3. LUCENTIS [Suspect]
     Active Substance: RANIBIZUMAB
     Dosage: IN RIGHT EYE
     Route: 050
     Dates: start: 20141014
  4. LUCENTIS [Suspect]
     Active Substance: RANIBIZUMAB
     Dosage: IN RIGHT EYE
     Route: 050
     Dates: start: 20150108
  5. LUCENTIS [Suspect]
     Active Substance: RANIBIZUMAB
     Dosage: IN RIGHT EYE
     Route: 050
  6. LUCENTIS [Suspect]
     Active Substance: RANIBIZUMAB
     Dosage: IN RIGHT EYE
     Route: 050
  7. CRAVIT [Concomitant]
     Active Substance: LEVOFLOXACIN
     Indication: INFECTION PROPHYLAXIS
     Dosage: EYE DROPS
     Route: 065
     Dates: start: 20131207
  8. FLOMOX (CEFCAPENE PIVOXIL HYDROCHLORIDE) [Concomitant]
     Active Substance: CEFCAPENE PIVOXIL HYDROCHLORIDE
     Indication: INFECTION PROPHYLAXIS
     Route: 065
     Dates: start: 20131209, end: 20150109
  9. LUCENTIS [Suspect]
     Active Substance: RANIBIZUMAB
     Dosage: RIGHT EYE
     Route: 050

REACTIONS (1)
  - Putamen haemorrhage [Recovering/Resolving]

NARRATIVE: CASE EVENT DATE: 20150224
